FAERS Safety Report 12052017 (Version 1)
Quarter: 2016Q1

REPORT INFORMATION
  Report Type: Spontaneous
  Country: HR (occurrence: HR)
  Receive Date: 20160209
  Receipt Date: 20160209
  Transmission Date: 20160526
  Serious: Yes (Other)
  Sender: FDA-Public Use
  Company Number: PHHY2016HR013981

PATIENT
  Age: 57 Year
  Sex: Male

DRUGS (3)
  1. PROPAFENONE. [Concomitant]
     Active Substance: PROPAFENONE
     Indication: ATRIAL FIBRILLATION
     Dosage: 150 MG, BID
     Route: 048
     Dates: start: 2015
  2. BISOPROLOL [Suspect]
     Active Substance: BISOPROLOL
     Indication: ATRIAL FIBRILLATION
     Dosage: 2.5 MG, QD
     Route: 048
     Dates: start: 2015, end: 2015
  3. NADROPARINE [Concomitant]
     Active Substance: NADROPARIN
     Indication: THROMBOSIS PROPHYLAXIS
     Dosage: 0.8 ML, QD
     Route: 058

REACTIONS (3)
  - Skull fracture [Unknown]
  - Blood pressure decreased [Unknown]
  - Bradycardia [Unknown]

NARRATIVE: CASE EVENT DATE: 2015
